FAERS Safety Report 17122823 (Version 1)
Quarter: 2019Q4

REPORT INFORMATION
  Report Type: Spontaneous
  Country: US (occurrence: US)
  Receive Date: 20191206
  Receipt Date: 20191206
  Transmission Date: 20200122
  Serious: No
  Sender: FDA-Public Use
  Company Number: NVSC2019US051875

PATIENT
  Sex: Male

DRUGS (1)
  1. TERBINAFINE. [Suspect]
     Active Substance: TERBINAFINE
     Indication: BODY TINEA
     Dosage: UNK
     Route: 065

REACTIONS (3)
  - Gout [Unknown]
  - Malaise [Unknown]
  - Nausea [Unknown]
